FAERS Safety Report 14655050 (Version 1)
Quarter: 2018Q1

REPORT INFORMATION
  Report Type: Report from Study
  Country: None (occurrence: US)
  Receive Date: 20180319
  Receipt Date: 20180319
  Transmission Date: 20180509
  Serious: Yes (Hospitalization, Other)
  Sender: FDA-Public Use
  Company Number: US-ABBVIE-18K-163-2277710-00

PATIENT
  Age: 69 Year
  Sex: Female
  Weight: 130.75 kg

DRUGS (13)
  1. ECONAZOLE NITRATE CREAM [Concomitant]
     Indication: PRODUCT USED FOR UNKNOWN INDICATION
  2. BIOTIN [Concomitant]
     Active Substance: BIOTIN
     Indication: ALOPECIA
  3. LOSARTAN. [Concomitant]
     Active Substance: LOSARTAN
     Indication: HYPERTENSION
  4. METHOTREXATE. [Concomitant]
     Active Substance: METHOTREXATE
     Indication: PSORIATIC ARTHROPATHY
  5. VITAMIN D [Concomitant]
     Active Substance: CHOLECALCIFEROL
     Indication: PRODUCT USED FOR UNKNOWN INDICATION
  6. HUMIRA [Suspect]
     Active Substance: ADALIMUMAB
     Route: 058
  7. HUMIRA [Suspect]
     Active Substance: ADALIMUMAB
     Route: 058
     Dates: end: 2017
  8. FLUVASTATIN ER [Concomitant]
     Indication: BLOOD CHOLESTEROL INCREASED
  9. AMOXICILLIN. [Concomitant]
     Active Substance: AMOXICILLIN
     Indication: PROPHYLAXIS
  10. CINNAMON. [Concomitant]
     Active Substance: CINNAMON
     Indication: DIABETES PROPHYLAXIS
  11. FOLIC ACID. [Concomitant]
     Active Substance: FOLIC ACID
     Indication: PRODUCT USED FOR UNKNOWN INDICATION
  12. HUMIRA [Suspect]
     Active Substance: ADALIMUMAB
     Indication: PSORIATIC ARTHROPATHY
     Route: 058
     Dates: end: 2016
  13. AGGRENOX [Concomitant]
     Active Substance: ASPIRIN\DIPYRIDAMOLE
     Indication: TRANSIENT ISCHAEMIC ATTACK

REACTIONS (7)
  - Arthralgia [Not Recovered/Not Resolved]
  - Conjunctivitis [Unknown]
  - Psoriasis [Recovered/Resolved]
  - Lymphadenopathy [Unknown]
  - Sensitivity to weather change [Unknown]
  - Skin exfoliation [Unknown]
  - Cartilage atrophy [Recovered/Resolved]

NARRATIVE: CASE EVENT DATE: 201711
